FAERS Safety Report 9998615 (Version 3)
Quarter: 2014Q2

REPORT INFORMATION
  Report Type: Spontaneous
  Country: US (occurrence: US)
  Receive Date: 20140312
  Receipt Date: 20140618
  Transmission Date: 20141212
  Serious: No
  Sender: FDA-Public Use
  Company Number: US-BIOGENIDEC-2014BI019084

PATIENT
  Age: 57 Year
  Sex: Female

DRUGS (12)
  1. TECFIDERA [Suspect]
     Indication: MULTIPLE SCLEROSIS
     Dates: start: 201402
  2. TECFIDERA [Suspect]
     Indication: MULTIPLE SCLEROSIS
     Dates: start: 20140207
  3. TECFIDERA [Suspect]
     Indication: MULTIPLE SCLEROSIS
     Dates: start: 20140208, end: 20140319
  4. CALCIUM CARBONATE [Concomitant]
  5. CELEXA [Concomitant]
  6. DIGOXIN [Concomitant]
  7. FUROSEMIDE [Concomitant]
  8. POTASSIUM CHLORIDE [Concomitant]
  9. TYLENOL [Concomitant]
  10. VITAMIN D3 [Concomitant]
  11. WARFARIN [Concomitant]
  12. ZEBETA [Concomitant]

REACTIONS (9)
  - Weight decreased [Not Recovered/Not Resolved]
  - Dizziness [Unknown]
  - Asthenia [Unknown]
  - Diplopia [Unknown]
  - Muscle spasms [Unknown]
  - Diarrhoea [Not Recovered/Not Resolved]
  - Hepatic enzyme abnormal [Unknown]
  - Vomiting [Unknown]
  - Abdominal pain [Unknown]
